FAERS Safety Report 15196410 (Version 1)
Quarter: 2018Q3

REPORT INFORMATION
  Report Type: Spontaneous
  Country: US (occurrence: US)
  Receive Date: 20180626
  Receipt Date: 20180626
  Transmission Date: 20181010
  Serious: Yes (Other)
  Sender: FDA-Public Use
  Company Number: None

PATIENT
  Age: 72 Year
  Sex: Female
  Weight: 94.5 kg

DRUGS (12)
  1. DULOXETINE. [Concomitant]
     Active Substance: DULOXETINE
  2. SANCTURA [Concomitant]
     Active Substance: TROSPIUM CHLORIDE
  3. HYDROCHLOROTHIAZIDE. [Concomitant]
     Active Substance: HYDROCHLOROTHIAZIDE
  4. LETROZOLE. [Concomitant]
     Active Substance: LETROZOLE
  5. BUPROPION. [Concomitant]
     Active Substance: BUPROPION
  6. CENTRUM SILVER [Concomitant]
     Active Substance: MINERALS\VITAMINS
  7. DOXYCYCLINE. [Concomitant]
     Active Substance: DOXYCYCLINE
  8. BENICAR [Concomitant]
     Active Substance: OLMESARTAN MEDOXOMIL
  9. KEFLEX [Concomitant]
     Active Substance: CEPHALEXIN
  10. IBRANCE [Suspect]
     Active Substance: PALBOCICLIB
     Indication: BREAST CANCER
     Route: 048
     Dates: start: 20160531, end: 20180626
  11. OXYCODONE [Concomitant]
     Active Substance: OXYCODONE
  12. RANITIDINE. [Concomitant]
     Active Substance: RANITIDINE

REACTIONS (1)
  - Disease progression [None]
